FAERS Safety Report 11521740 (Version 4)
Quarter: 2016Q3

REPORT INFORMATION
  Report Type: Report from Study
  Country: BR (occurrence: BR)
  Receive Date: 20150918
  Receipt Date: 20160830
  Transmission Date: 20161109
  Serious: Yes (Hospitalization)
  Sender: FDA-Public Use
  Company Number: BR-ROCHE-1635690

PATIENT
  Age: 48 Year
  Sex: Female
  Weight: 75 kg

DRUGS (15)
  1. ARADOIS [Concomitant]
     Active Substance: LOSARTAN POTASSIUM
     Dosage: TWICE A DAY
     Route: 065
  2. FOLIC ACID. [Concomitant]
     Active Substance: FOLIC ACID
  3. GLIFAGE XR [Concomitant]
     Active Substance: METFORMIN HYDROCHLORIDE
     Route: 065
  4. NIFEDIPINE. [Concomitant]
     Active Substance: NIFEDIPINE
     Route: 065
  5. ACTEMRA [Suspect]
     Active Substance: TOCILIZUMAB
     Indication: RHEUMATOID ARTHRITIS
     Dosage: LATEST INFUSION DATE WAS 01/JUL/2016.
     Route: 042
     Dates: start: 20150817
  6. DONAREN [Concomitant]
     Active Substance: TRAZODONE HYDROCHLORIDE
     Indication: ANXIOLYTIC THERAPY
     Route: 065
  7. APRAZ [Concomitant]
     Indication: ANXIETY
     Route: 065
  8. TYLEX (BRAZIL) [Concomitant]
     Active Substance: ACETAMINOPHEN\CODEINE PHOSPHATE
     Dosage: TWICE A DAY
     Route: 065
  9. METHOTREXATE. [Concomitant]
     Active Substance: METHOTREXATE
     Route: 065
  10. PREDSIM [Concomitant]
     Active Substance: PREDNISOLONE
     Route: 065
  11. VASOGARD [Concomitant]
     Active Substance: CILOSTAZOL
     Dosage: TWICE A DAY
     Route: 065
  12. STABLON [Concomitant]
     Active Substance: TIANEPTINE
     Indication: DEPRESSION
     Route: 065
  13. APRESOLINE HYDROCHLORIDE [Concomitant]
     Active Substance: HYDRALAZINE HYDROCHLORIDE
     Route: 065
  14. ZETIA [Concomitant]
     Active Substance: EZETIMIBE
     Route: 065
  15. VELIJA [Concomitant]
     Active Substance: DULOXETINE HYDROCHLORIDE
     Route: 065

REACTIONS (9)
  - Weight decreased [Unknown]
  - Back pain [Recovered/Resolved]
  - Localised infection [Recovered/Resolved]
  - Gait disturbance [Unknown]
  - Weight increased [Unknown]
  - Headache [Recovered/Resolved]
  - Myalgia [Recovered/Resolved]
  - Pyrexia [Recovered/Resolved]
  - Fatigue [Recovered/Resolved]

NARRATIVE: CASE EVENT DATE: 201509
